FAERS Safety Report 15607332 (Version 3)
Quarter: 2022Q1

REPORT INFORMATION
  Report Type: Spontaneous
  Country: FR (occurrence: SE)
  Receive Date: 20181112
  Receipt Date: 20220217
  Transmission Date: 20220424
  Serious: Yes (Hospitalization, Other)
  Sender: FDA-Public Use
  Company Number: FR-KINGPHARMUSA00001-K201000594

PATIENT
  Age: 79 Year
  Sex: Female

DRUGS (6)
  1. ALTACE [Interacting]
     Active Substance: RAMIPRIL
     Indication: Atrial fibrillation
     Dosage: 10 MG, UNK
     Route: 048
     Dates: end: 20100211
  2. ALTACE [Interacting]
     Active Substance: RAMIPRIL
     Dosage: 10 MG, 1X/DAY
     Route: 048
     Dates: start: 2010
  3. RAMIPRIL [Interacting]
     Active Substance: RAMIPRIL
     Dosage: 10 MG, UNK
     Route: 048
     Dates: start: 2010
  4. RAMIPRIL [Interacting]
     Active Substance: RAMIPRIL
     Dosage: 10 MG, UNK
     Route: 048
     Dates: start: 2010
  5. SPIRONOLACTONE [Interacting]
     Active Substance: SPIRONOLACTONE
     Dosage: UNK
     Route: 048
     Dates: start: 201002, end: 201002
  6. DIGOXIN [Interacting]
     Active Substance: DIGOXIN
     Indication: Atrial fibrillation
     Dosage: UNK
     Route: 048

REACTIONS (5)
  - Hyperkalaemia [Recovered/Resolved]
  - Facial bones fracture [Recovered/Resolved]
  - Fall [Recovered/Resolved]
  - Cardioactive drug level increased [Recovered/Resolved]
  - Drug therapeutic incompatibility [Recovered/Resolved]

NARRATIVE: CASE EVENT DATE: 20100211
